FAERS Safety Report 19455619 (Version 2)
Quarter: 2021Q2

REPORT INFORMATION
  Report Type: Spontaneous
  Country: CA (occurrence: CA)
  Receive Date: 20210623
  Receipt Date: 20210628
  Transmission Date: 20210717
  Serious: Yes (Other)
  Sender: FDA-Public Use
  Company Number: CA-CELLTRION INC.-2021CA008382

PATIENT

DRUGS (7)
  1. ACETAMINOPHEN. [Concomitant]
     Active Substance: ACETAMINOPHEN
     Indication: PREMEDICATION
     Dosage: 650 MG
     Dates: start: 20210507, end: 20210507
  2. INFLECTRA [Suspect]
     Active Substance: INFLIXIMAB-DYYB
     Indication: CROHN^S DISEASE
     Dosage: 390 MG, 0, 2, 6, THEN EVERY 8 WEEKS
     Route: 041
     Dates: start: 20210507, end: 20210507
  3. HYDROCORTISONE. [Concomitant]
     Active Substance: HYDROCORTISONE
     Indication: PREMEDICATION
     Dosage: 200 MG
     Dates: start: 20210507, end: 20210507
  4. INFLECTRA [Suspect]
     Active Substance: INFLIXIMAB-DYYB
     Dosage: 390 MG, 0, 2, 6, THEN EVERY 8 WEEKS
     Route: 041
     Dates: start: 20210521, end: 20210521
  5. INFLECTRA [Suspect]
     Active Substance: INFLIXIMAB-DYYB
     Dosage: 390 MG, 0, 2, 6, THEN EVERY 8 WEEKS
     Route: 041
     Dates: start: 20210521, end: 20210521
  6. DIPHENHYDRAMINE. [Concomitant]
     Active Substance: DIPHENHYDRAMINE
     Indication: PREMEDICATION
     Dosage: 50 MG
     Dates: start: 20210507, end: 20210507
  7. METHOTREXATE. [Concomitant]
     Active Substance: METHOTREXATE
     Indication: CROHN^S DISEASE
     Dosage: 1 DF

REACTIONS (4)
  - Insomnia [Unknown]
  - Blood pressure diastolic decreased [Not Recovered/Not Resolved]
  - Pain in jaw [Not Recovered/Not Resolved]
  - Pain in extremity [Not Recovered/Not Resolved]

NARRATIVE: CASE EVENT DATE: 202105
